FAERS Safety Report 4317979-9 (Version None)
Quarter: 2004Q1

REPORT INFORMATION
  Report Type: 
  Country: None (occurrence: None)
  Receive Date: 20040316
  Receipt Date: 20040304
  Transmission Date: 20041129
  Serious: Yes (Other)
  Sender: FDA-Public Use
  Company Number: PHRM2004FR01058

PATIENT
  Age: 53 Year
  Sex: Male

DRUGS (4)
  1. VISKEN [Suspect]
     Indication: TACHYCARDIA
     Dosage: 5 MG, QD
     Route: 048
  2. OGAST [Concomitant]
  3. PLAVIX [Concomitant]
  4. TAHOR [Concomitant]

REACTIONS (1)
  - PEMPHIGUS [None]
